FAERS Safety Report 10293848 (Version 1)
Quarter: 2014Q3

REPORT INFORMATION
  Report Type: Spontaneous
  Country: US (occurrence: US)
  Receive Date: 20140710
  Receipt Date: 20140710
  Transmission Date: 20150326
  Serious: No
  Sender: FDA-Public Use
  Company Number: US-TEVA-493630USA

PATIENT
  Age: 39 Year
  Sex: Female
  Weight: 55.39 kg

DRUGS (1)
  1. PARAGARD T380A [Suspect]
     Active Substance: COPPER
     Indication: POST COITAL CONTRACEPTION
     Route: 015
     Dates: start: 20121206, end: 20140603

REACTIONS (2)
  - Device breakage [Recovered/Resolved]
  - Pelvic pain [Recovered/Resolved]

NARRATIVE: CASE EVENT DATE: 20130726
